FAERS Safety Report 19759198 (Version 1)
Quarter: 2021Q3

REPORT INFORMATION
  Report Type: Report from Study
  Country: KR (occurrence: KR)
  Receive Date: 20210827
  Receipt Date: 20210827
  Transmission Date: 20211014
  Serious: Yes (Other)
  Sender: FDA-Public Use
  Company Number: KR-DSJP-DSJ-2021-127912

PATIENT
  Age: 85 Year
  Sex: Male

DRUGS (4)
  1. CILOSTAZOL. [Concomitant]
     Active Substance: CILOSTAZOL
     Dosage: 200 MG, DAY
     Route: 065
     Dates: start: 20200918
  2. FEROBA YOU [Concomitant]
     Dosage: 265 MG, BID
     Route: 065
     Dates: start: 20210726
  3. EDOXABAN [Suspect]
     Active Substance: EDOXABAN TOSYLATE
     Indication: PRODUCT USED FOR UNKNOWN INDICATION
     Dosage: 30 MG, DAY
     Route: 048
     Dates: start: 20200804
  4. CILOSTAZOL. [Concomitant]
     Active Substance: CILOSTAZOL
     Dosage: 100 MG, DAY
     Route: 065
     Dates: start: 20200804, end: 20200917

REACTIONS (1)
  - Urinary bladder haematoma [Recovering/Resolving]

NARRATIVE: CASE EVENT DATE: 20210813
